FAERS Safety Report 7598531-9 (Version None)
Quarter: 2011Q3

REPORT INFORMATION
  Report Type: 
  Country: None (occurrence: None)
  Receive Date: 20110708
  Receipt Date: 20110627
  Transmission Date: 20111222
  Serious: Yes (Hospitalization)
  Sender: FDA-Public Use
  Company Number: US-ELI_LILLY_AND_COMPANY-US201106008170

PATIENT
  Sex: Male

DRUGS (3)
  1. NOVOLOG [Concomitant]
     Dosage: UNK, PRN
  2. GLYBURIDE [Concomitant]
     Dosage: UNK
  3. HUMALOG MIX 75/25 [Suspect]
     Indication: DIABETES MELLITUS
     Dosage: 44 U, BID

REACTIONS (1)
  - RENAL FAILURE [None]
